FAERS Safety Report 4600486-3 (Version None)
Quarter: 2005Q1

REPORT INFORMATION
  Report Type: 
  Country: None (occurrence: None)
  Receive Date: 20050304
  Receipt Date: 20050301
  Transmission Date: 20050727
  Serious: Yes (Death, Hospitalization)
  Sender: FDA-Public Use
  Company Number: Q05-004

PATIENT
  Age: 64 Year
  Sex: Male
  Weight: 69 kg

DRUGS (10)
  1. QUADRAMET [Suspect]
     Indication: METASTASES TO BONE
     Dosage: 69 MCI I.V.
     Route: 042
     Dates: start: 20050120
  2. QUADRAMET [Suspect]
     Indication: METASTATIC PAIN
     Dosage: 69 MCI I.V.
     Route: 042
     Dates: start: 20050120
  3. CASODEX [Concomitant]
  4. ZOLADEX [Concomitant]
  5. MARINOL [Concomitant]
  6. PHENERGAN [Concomitant]
  7. LEXAPRO [Concomitant]
  8. METHADONE [Concomitant]
  9. FENTANYL [Concomitant]
  10. ARANSEP [Concomitant]

REACTIONS (10)
  - ALANINE AMINOTRANSFERASE INCREASED [None]
  - ANAEMIA [None]
  - ASPARTATE AMINOTRANSFERASE INCREASED [None]
  - CACHEXIA [None]
  - HAEMATURIA [None]
  - HYPOXIA [None]
  - JAUNDICE [None]
  - NAUSEA [None]
  - THROMBOCYTOPENIA [None]
  - VOMITING [None]
